FAERS Safety Report 12039672 (Version 2)
Quarter: 2019Q4

REPORT INFORMATION
  Report Type: Other
  Country: US (occurrence: US)
  Receive Date: 20160208
  Receipt Date: 20191019
  Transmission Date: 20200122
  Serious: No
  Sender: FDA-Public Use
  Company Number: US-AMAG PHARMACEUTICALS, INC.-AMAG201500822

PATIENT
  Age: 33 Year
  Sex: Female

DRUGS (5)
  1. PERCOCET [Concomitant]
     Active Substance: ACETAMINOPHEN\OXYCODONE HYDROCHLORIDE
     Indication: PELVIC PAIN
     Dates: start: 201303
  2. MAKENA [Suspect]
     Active Substance: HYDROXYPROGESTERONE CAPROATE
     Indication: PREMATURE DELIVERY
     Dosage: 250 MG, WEEKLY
     Route: 030
     Dates: start: 20150617
  3. NORCO [Concomitant]
     Active Substance: ACETAMINOPHEN\HYDROCODONE BITARTRATE
     Indication: PELVIC PAIN
     Dates: start: 201303
  4. DICLEGIS [Concomitant]
     Active Substance: DOXYLAMINE SUCCINATE\PYRIDOXINE HYDROCHLORIDE
     Indication: PELVIC PAIN
     Dates: start: 201303
  5. PRENATAL VITAMINS [Concomitant]
     Active Substance: VITAMINS
     Dosage: 250 MG, WEEKLY
     Route: 048

REACTIONS (4)
  - Pelvic pain [Unknown]
  - Back pain [Unknown]
  - Pain [Unknown]
  - Premature labour [Not Recovered/Not Resolved]

NARRATIVE: CASE EVENT DATE: 20150715
